FAERS Safety Report 24921187 (Version 8)
Quarter: 2025Q2

REPORT INFORMATION
  Report Type: Report from Study
  Country: CA (occurrence: CA)
  Receive Date: 20250204
  Receipt Date: 20250522
  Transmission Date: 20250717
  Serious: Yes (Hospitalization, Other)
  Sender: TAKEDA
  Company Number: CA-TAKEDA-2025TUS010133

PATIENT
  Age: 80 Year
  Sex: Female

DRUGS (36)
  1. GLASSIA [Suspect]
     Active Substance: .ALPHA.1-PROTEINASE INHIBITOR HUMAN
     Indication: Alpha-1 antitrypsin deficiency
  2. GLASSIA [Suspect]
     Active Substance: .ALPHA.1-PROTEINASE INHIBITOR HUMAN
     Dosage: 9000 MILLIGRAM, Q2WEEKS
     Dates: start: 20250114
  3. GLASSIA [Suspect]
     Active Substance: .ALPHA.1-PROTEINASE INHIBITOR HUMAN
     Dosage: 8000 MILLIGRAM, Q2WEEKS
  4. GLASSIA [Suspect]
     Active Substance: .ALPHA.1-PROTEINASE INHIBITOR HUMAN
     Dosage: 8000 MILLIGRAM, Q2WEEKS
  5. HUMAN IMMUNOGLOBULIN G [Suspect]
     Active Substance: HUMAN IMMUNOGLOBULIN G
     Indication: Product used for unknown indication
     Dosage: 20 GRAM, MONTHLY
     Dates: start: 202201
  6. SPIRIVA [Concomitant]
     Active Substance: TIOTROPIUM BROMIDE MONOHYDRATE
  7. PROLASTIN [Concomitant]
     Active Substance: .ALPHA.1-PROTEINASE INHIBITOR HUMAN
  8. ANORO ELLIPTA [Concomitant]
     Active Substance: UMECLIDINIUM BROMIDE\VILANTEROL TRIFENATATE
  9. OXYGEN [Concomitant]
     Active Substance: OXYGEN
  10. CYMBALTA [Concomitant]
     Active Substance: DULOXETINE HYDROCHLORIDE
     Dosage: 30 MILLIGRAM, BID
  11. FLOVENT [Concomitant]
     Active Substance: FLUTICASONE PROPIONATE
  12. PANTOPRAZOLE SODIUM [Concomitant]
     Active Substance: PANTOPRAZOLE SODIUM
     Dosage: 40 MILLIGRAM, QD
  13. HYDROCHLOROTHIAZIDE [Concomitant]
     Active Substance: HYDROCHLOROTHIAZIDE
  14. VENTOLIN [Concomitant]
     Active Substance: ALBUTEROL SULFATE
  15. SINGULAIR [Concomitant]
     Active Substance: MONTELUKAST SODIUM
  16. VERAPAMIL [Concomitant]
     Active Substance: VERAPAMIL HYDROCHLORIDE
  17. TRAMADOL [Concomitant]
     Active Substance: TRAMADOL
  18. PREDNISONE [Concomitant]
     Active Substance: PREDNISONE
  19. GABAPENTIN [Concomitant]
     Active Substance: GABAPENTIN
  20. PREGABALIN [Concomitant]
     Active Substance: PREGABALIN
     Dosage: 50 MILLIGRAM, TID
  21. CYCLOBENZAPRINE [Concomitant]
     Active Substance: CYCLOBENZAPRINE
     Dosage: 10 MILLIGRAM, BID
  22. TIOTROPIUM [Concomitant]
     Active Substance: TIOTROPIUM
     Dosage: 5 MICROGRAM, QD
  23. BREO ELLIPTA [Concomitant]
     Active Substance: FLUTICASONE FUROATE\VILANTEROL TRIFENATATE
     Dosage: UNK UNK, QD
  24. ALBUTEROL [Concomitant]
     Active Substance: ALBUTEROL
     Dosage: UNK UNK, QD
  25. DILTIAZEM [Concomitant]
     Active Substance: DILTIAZEM
     Dosage: 120 MILLIGRAM, BID
  26. ROSUVASTATIN [Concomitant]
     Active Substance: ROSUVASTATIN
     Dosage: 10 MILLIGRAM, QD
  27. CANDESARTAN [Concomitant]
     Active Substance: CANDESARTAN
     Dosage: 8 MILLIGRAM, QD
  28. TRAVOPROST [Concomitant]
     Active Substance: TRAVOPROST
     Dosage: UNK UNK, QD
  29. ZOLEDRONIC ACID [Concomitant]
     Active Substance: ZOLEDRONIC ACID
  30. CALCIUM [Concomitant]
     Active Substance: CALCIUM
     Dosage: 650 MILLIGRAM, BID
  31. VITAMIN D [Concomitant]
     Active Substance: VITAMIN D NOS
     Dosage: 1000 INTERNATIONAL UNIT, QD
  32. VITAMIN C [Concomitant]
     Active Substance: ASCORBIC ACID
     Dosage: 1000 MILLIGRAM, QD
  33. MAGNESIUM [Concomitant]
     Active Substance: MAGNESIUM
     Dosage: 500 MILLIGRAM, QD
  34. MINERALS\VITAMINS [Concomitant]
     Active Substance: MINERALS\VITAMINS
     Dosage: UNK UNK, QD
  35. COLLAGEN [Concomitant]
     Active Substance: COLLAGEN
     Dosage: 500 MILLIGRAM, QD
  36. EXTRA STRENGTH TYLENOL PM [Concomitant]
     Active Substance: ACETAMINOPHEN\DIPHENHYDRAMINE HYDROCHLORIDE
     Dosage: UNK, Q4HR

REACTIONS (25)
  - Pneumonia [Recovering/Resolving]
  - Dehydration [Unknown]
  - Blood pressure systolic increased [Unknown]
  - Blood pressure increased [Not Recovered/Not Resolved]
  - Dyspepsia [Recovered/Resolved]
  - Blood pressure fluctuation [Recovered/Resolved]
  - Joint swelling [Recovered/Resolved]
  - Visual impairment [Recovered/Resolved]
  - Head discomfort [Recovered/Resolved]
  - Oxygen saturation abnormal [Recovered/Resolved]
  - Incorrect dose administered [Recovered/Resolved]
  - Hypertension [Unknown]
  - Erythema [Unknown]
  - Blood immunoglobulin G decreased [Unknown]
  - Serum sickness [Unknown]
  - Dysphagia [Unknown]
  - Transfusion reaction [Unknown]
  - Infusion site swelling [Unknown]
  - Feeling abnormal [Recovered/Resolved]
  - Chest discomfort [Recovered/Resolved]
  - Chest pain [Not Recovered/Not Resolved]
  - Malaise [Not Recovered/Not Resolved]
  - Back pain [Not Recovered/Not Resolved]
  - Dyspnoea [Recovered/Resolved]
  - Headache [Not Recovered/Not Resolved]

NARRATIVE: CASE EVENT DATE: 20250225
